FAERS Safety Report 7251182-8 (Version None)
Quarter: 2011Q1

REPORT INFORMATION
  Report Type: 
  Country: None (occurrence: None)
  Receive Date: 20110128
  Receipt Date: 20110119
  Transmission Date: 20110831
  Serious: Yes (Hospitalization, Disabling, Other)
  Sender: FDA-Public Use
  Company Number: US-ASTRAZENECA-2010SE40688

PATIENT
  Age: 19887 Day
  Sex: Female
  Weight: 95.3 kg

DRUGS (2)
  1. PRILOSEC OTC [Suspect]
     Indication: DYSPEPSIA
     Route: 048
     Dates: start: 20030101, end: 20080801
  2. RITALIN [Concomitant]
     Route: 048

REACTIONS (3)
  - HUMERUS FRACTURE [None]
  - MUSCULOSKELETAL PAIN [None]
  - FALL [None]
